FAERS Safety Report 5077782-1 (Version None)
Quarter: 2006Q3

REPORT INFORMATION
  Report Type: 
  Country: None (occurrence: None)
  Receive Date: 20060807
  Receipt Date: 20060728
  Transmission Date: 20061208
  Serious: Yes (Hospitalization)
  Sender: FDA-Public Use
  Company Number: 2006-07-0189

PATIENT
  Age: 50 Year
  Sex: Female
  Weight: 81.6475 kg

DRUGS (7)
  1. PEG-INTRON [Suspect]
     Indication: HEPATITIS C
     Dosage: 80 MCG QWK SUBCUTANEOUS
     Route: 058
     Dates: start: 20060505
  2. PEG-INTRON [Suspect]
     Indication: HEPATITIS C
     Dosage: 80 MCG QWK SUBCUTANEOUS
     Route: 058
     Dates: start: 20060701
  3. REBETOL [Suspect]
     Indication: HEPATITIS C
     Dosage: 1000 MG QD ORAL
     Route: 048
     Dates: start: 20060505
  4. REBETOL [Suspect]
     Indication: HEPATITIS C
     Dosage: 1000 MG QD ORAL
     Route: 048
     Dates: start: 20060701
  5. DARVOCET [Concomitant]
  6. KLONOPIN [Concomitant]
  7. SEROQUEL (QUETIAPINE FUMURATE) [Concomitant]

REACTIONS (14)
  - ABDOMINAL PAIN UPPER [None]
  - ASTHENIA [None]
  - BLOOD COUNT ABNORMAL [None]
  - BLOOD PRESSURE DECREASED [None]
  - FATIGUE [None]
  - HEART RATE DECREASED [None]
  - MENORRHAGIA [None]
  - NAUSEA [None]
  - ORAL INTAKE REDUCED [None]
  - PANCREATIC DISORDER [None]
  - PLATELET COUNT DECREASED [None]
  - SWELLING [None]
  - WEIGHT DECREASED [None]
  - WHITE BLOOD CELL COUNT DECREASED [None]
